FAERS Safety Report 16217228 (Version 1)
Quarter: 2019Q2

REPORT INFORMATION
  Report Type: Spontaneous
  Country: GB (occurrence: GB)
  Receive Date: 20190419
  Receipt Date: 20190419
  Transmission Date: 20190711
  Serious: Yes (Hospitalization, Other)
  Sender: FDA-Public Use
  Company Number: GB-SA-2019SA109128

PATIENT
  Age: 37 Year
  Sex: Female

DRUGS (1)
  1. ENOXAPARIN SODIUM. [Suspect]
     Active Substance: ENOXAPARIN SODIUM

REACTIONS (7)
  - HELLP syndrome [Unknown]
  - Oxygen saturation decreased [Unknown]
  - Haemophagocytic lymphohistiocytosis [Unknown]
  - Dyspnoea [Unknown]
  - Hepatomegaly [Unknown]
  - Exposure during pregnancy [Unknown]
  - Chest pain [Unknown]
